FAERS Safety Report 12415348 (Version 2)
Quarter: 2016Q2

REPORT INFORMATION
  Report Type: Spontaneous
  Country: US (occurrence: US)
  Receive Date: 20160530
  Receipt Date: 20160614
  Transmission Date: 20160815
  Serious: No
  Sender: FDA-Public Use
  Company Number: US-PFIZER INC-2016255361

PATIENT
  Age: 79 Year
  Sex: Female
  Weight: 77 kg

DRUGS (5)
  1. VERAPAMIL HCL [Suspect]
     Active Substance: VERAPAMIL HYDROCHLORIDE
     Dosage: UNK
     Dates: start: 201604
  2. VALSARTAN. [Concomitant]
     Active Substance: VALSARTAN
     Indication: ANGINA PECTORIS
  3. VERAPAMIL HCL [Suspect]
     Active Substance: VERAPAMIL HYDROCHLORIDE
     Dosage: UNK
     Dates: start: 201602
  4. VALSARTAN. [Concomitant]
     Active Substance: VALSARTAN
     Indication: ARRHYTHMIA
     Dosage: UNK
  5. VALSARTAN. [Concomitant]
     Active Substance: VALSARTAN
     Indication: BLOOD PRESSURE ABNORMAL

REACTIONS (6)
  - Diarrhoea [Unknown]
  - Drug intolerance [Unknown]
  - Malaise [Unknown]
  - Muscle spasms [Unknown]
  - Dizziness [Unknown]
  - Hypersensitivity [Unknown]
